FAERS Safety Report 5318768-9 (Version None)
Quarter: 2007Q2

REPORT INFORMATION
  Report Type: 
  Country: None (occurrence: None)
  Receive Date: 20070504
  Receipt Date: 20070504
  Transmission Date: 20071010
  Serious: Yes (Other)
  Sender: FDA-Public Use
  Company Number: None

PATIENT
  Age: 69 Year
  Sex: Female

DRUGS (2)
  1. ZELNORM [Suspect]
     Indication: CONSTIPATION
     Dosage: TAKE 1 TABLET TWICE A DAY BEFORE MEALS APPROXIMATELY 2 YEARS
  2. ZELNORM [Suspect]
     Indication: IRRITABLE BOWEL SYNDROME
     Dosage: TAKE 1 TABLET TWICE A DAY BEFORE MEALS APPROXIMATELY 2 YEARS

REACTIONS (4)
  - CARDIAC STRESS TEST ABNORMAL [None]
  - DYSPNOEA [None]
  - ELECTROCARDIOGRAM ABNORMAL [None]
  - MYALGIA [None]
